FAERS Safety Report 7962159-9 (Version None)
Quarter: 2011Q4

REPORT INFORMATION
  Report Type: 
  Country: None (occurrence: None)
  Receive Date: 20111207
  Receipt Date: 20111129
  Transmission Date: 20120403
  Serious: Yes (Hospitalization)
  Sender: FDA-Public Use
  Company Number: FR-ASTRAZENECA-2011SE72321

PATIENT
  Age: 61 Year
  Sex: Male

DRUGS (10)
  1. ATENOLOL [Suspect]
     Route: 048
     Dates: start: 20110802
  2. COZAAR [Suspect]
     Route: 048
     Dates: start: 20110901
  3. VALACYCLOVIR HYDROCHLORIDE [Concomitant]
     Route: 048
     Dates: start: 20110830, end: 20110906
  4. NEXIUM [Suspect]
     Route: 048
     Dates: start: 20110802
  5. EFFIENT [Suspect]
     Route: 048
     Dates: start: 20110901
  6. PERINDOPRIL [Suspect]
     Route: 048
     Dates: start: 20110802, end: 20110901
  7. ROVAMYCINE [Concomitant]
     Route: 048
     Dates: start: 20110830, end: 20110906
  8. PLAVIX [Suspect]
     Route: 048
     Dates: start: 20110802, end: 20110901
  9. ATORVASTATIN CALCIUM [Suspect]
     Route: 048
     Dates: start: 20110802
  10. ASPIRIN [Suspect]
     Route: 048
     Dates: start: 20110802

REACTIONS (1)
  - ANAEMIA [None]
